FAERS Safety Report 4780143-3 (Version None)
Quarter: 2005Q3

REPORT INFORMATION
  Report Type: 
  Country: None (occurrence: None)
  Receive Date: 20050914
  Receipt Date: 20050418
  Transmission Date: 20060218
  Serious: Yes (Death, Hospitalization)
  Sender: FDA-Public Use
  Company Number: 163-20785-05040456

PATIENT
  Age: 82 Year
  Sex: Male
  Weight: 65.318 kg

DRUGS (5)
  1. THALOMID [Suspect]
     Indication: MULTIPLE MYELOMA
     Dosage: DAILY, ORAL
     Route: 048
     Dates: start: 20040507, end: 20040513
  2. CYCLOPHOSPHAMIDE [Suspect]
     Indication: MULTIPLE MYELOMA
     Dates: start: 20040507
  3. DEXAMETHASONE [Suspect]
     Indication: MULTIPLE MYELOMA
     Dates: start: 20040507
  4. ETOPOSIDE [Suspect]
     Indication: MULTIPLE MYELOMA
     Dates: start: 20040507
  5. CISPLATIN [Suspect]
     Indication: MULTIPLE MYELOMA
     Dates: start: 20040507

REACTIONS (10)
  - ANAEMIA [None]
  - ATRIAL FIBRILLATION [None]
  - CARDIAC FAILURE CONGESTIVE [None]
  - DEATH [None]
  - DISEASE PROGRESSION [None]
  - LEUKOPENIA [None]
  - PLEURAL EFFUSION [None]
  - PULMONARY OEDEMA [None]
  - SEPSIS [None]
  - THROMBOCYTOPENIA [None]
